FAERS Safety Report 24215623 (Version 2)
Quarter: 2024Q3

REPORT INFORMATION
  Report Type: Spontaneous
  Country: JP (occurrence: JP)
  Receive Date: 20240816
  Receipt Date: 20240903
  Transmission Date: 20241016
  Serious: No
  Sender: UCB
  Company Number: JP-UCBJ-CD202407416UCBPHAPROD

PATIENT
  Age: 30 Year
  Sex: Male

DRUGS (20)
  1. LEVETIRACETAM [Suspect]
     Active Substance: LEVETIRACETAM
     Indication: Partial seizures
     Dosage: 1000 MILLIGRAM PER DAY
     Route: 048
  2. LEVETIRACETAM [Suspect]
     Active Substance: LEVETIRACETAM
     Indication: Status epilepticus
     Dosage: 2000 MILLIGRAM PER DAY
     Route: 048
  3. LEVETIRACETAM [Suspect]
     Active Substance: LEVETIRACETAM
     Indication: Alice in wonderland syndrome
  4. LEVETIRACETAM [Suspect]
     Active Substance: LEVETIRACETAM
     Indication: Epstein-Barr virus infection
  5. LEVETIRACETAM [Suspect]
     Active Substance: LEVETIRACETAM
     Indication: Off label use
  6. CLONAZEPAM [Suspect]
     Active Substance: CLONAZEPAM
     Indication: Status epilepticus
     Dosage: 2 MILLIGRAM PER DAY
  7. CLONAZEPAM [Suspect]
     Active Substance: CLONAZEPAM
     Indication: Alice in wonderland syndrome
  8. CLONAZEPAM [Suspect]
     Active Substance: CLONAZEPAM
     Indication: Epstein-Barr virus infection
  9. VALPROATE SODIUM [Suspect]
     Active Substance: VALPROATE SODIUM
     Indication: Status epilepticus
     Dosage: UNK
  10. VALPROATE SODIUM [Suspect]
     Active Substance: VALPROATE SODIUM
     Indication: Alice in wonderland syndrome
  11. VALPROATE SODIUM [Suspect]
     Active Substance: VALPROATE SODIUM
     Indication: Epstein-Barr virus infection
  12. ACYCLOVIR [Suspect]
     Active Substance: ACYCLOVIR
     Indication: Status epilepticus
     Dosage: UNK
  13. ACYCLOVIR [Suspect]
     Active Substance: ACYCLOVIR
     Indication: Alice in wonderland syndrome
  14. ACYCLOVIR [Suspect]
     Active Substance: ACYCLOVIR
     Indication: Epstein-Barr virus infection
  15. FOSPHENYTOIN [Suspect]
     Active Substance: FOSPHENYTOIN
     Indication: Status epilepticus
     Dosage: UNK
     Route: 042
  16. FOSPHENYTOIN [Suspect]
     Active Substance: FOSPHENYTOIN
     Indication: Alice in wonderland syndrome
  17. FOSPHENYTOIN [Suspect]
     Active Substance: FOSPHENYTOIN
     Indication: Epstein-Barr virus infection
  18. CARBAMAZEPINE [Concomitant]
     Active Substance: CARBAMAZEPINE
     Indication: Status epilepticus
     Dosage: 600 MILLIGRAM PER DAY
  19. CARBAMAZEPINE [Concomitant]
     Active Substance: CARBAMAZEPINE
     Indication: Alice in wonderland syndrome
  20. CARBAMAZEPINE [Concomitant]
     Active Substance: CARBAMAZEPINE
     Indication: Epstein-Barr virus infection

REACTIONS (2)
  - Off label use [Unknown]
  - Multiple-drug resistance [Unknown]
